FAERS Safety Report 6589900-4 (Version None)
Quarter: 2010Q1

REPORT INFORMATION
  Report Type: 
  Country: None (occurrence: None)
  Receive Date: 20100219
  Receipt Date: 20100212
  Transmission Date: 20100710
  Serious: Yes (Other)
  Sender: FDA-Public Use
  Company Number: US-JNJFOC-20061100873

PATIENT
  Sex: Female

DRUGS (11)
  1. RISPERDAL [Suspect]
     Indication: MOOD SWINGS
     Route: 048
  2. RISPERDAL [Suspect]
     Indication: BIPOLAR DISORDER
     Route: 048
  3. RISPERDAL [Suspect]
     Indication: SLEEP DISORDER
     Route: 048
  4. ZYPREXA [Suspect]
     Indication: MOOD SWINGS
     Route: 065
  5. ZYPREXA [Suspect]
     Indication: BIPOLAR DISORDER
     Route: 065
  6. ZYPREXA [Suspect]
     Indication: SLEEP DISORDER
     Route: 065
  7. SEROQUEL [Suspect]
     Indication: MOOD SWINGS
     Route: 065
  8. SEROQUEL [Suspect]
     Indication: BIPOLAR DISORDER
     Route: 065
  9. SEROQUEL [Suspect]
     Indication: SLEEP DISORDER
     Route: 065
  10. SERZONE [Suspect]
     Indication: DRUG USE FOR UNKNOWN INDICATION
     Route: 048
  11. DALMANE [Suspect]
     Indication: DRUG USE FOR UNKNOWN INDICATION
     Route: 048

REACTIONS (8)
  - DIZZINESS [None]
  - MALAISE [None]
  - MOOD SWINGS [None]
  - MUSCULOSKELETAL STIFFNESS [None]
  - SEDATION [None]
  - SYNCOPE [None]
  - TONGUE DISORDER [None]
  - TYPE 2 DIABETES MELLITUS [None]
